APPROVED DRUG PRODUCT: ISONIAZID
Active Ingredient: ISONIAZID
Strength: 300MG
Dosage Form/Route: TABLET;ORAL
Application: N008499 | Product #003
Applicant: ELI LILLY AND CO
Approved: Approved Prior to Jan 1, 1982 | RLD: No | RS: No | Type: DISCN